FAERS Safety Report 4735740-8 (Version None)
Quarter: 2005Q3

REPORT INFORMATION
  Report Type: 
  Country: None (occurrence: None)
  Receive Date: 20050805
  Receipt Date: 20050727
  Transmission Date: 20060218
  Serious: Yes (Hospitalization)
  Sender: FDA-Public Use
  Company Number: US-KINGPHARMUSA00001-K200501006

PATIENT
  Age: 78 Year
  Sex: Male

DRUGS (9)
  1. ALTACE [Suspect]
     Indication: ESSENTIAL HYPERTENSION
     Dosage: 2.5 MG, QD
     Route: 048
     Dates: end: 20050507
  2. ALTACE [Suspect]
     Dosage: 1.25 MG, QD
     Route: 048
     Dates: start: 20050507
  3. ANAFRANIL [Suspect]
     Indication: DYSTHYMIC DISORDER
     Dosage: 25 MG, QD
     Route: 048
     Dates: end: 20050509
  4. FLUDEX [Suspect]
     Indication: ESSENTIAL HYPERTENSION
     Route: 048
     Dates: end: 20050507
  5. JOSIR [Suspect]
     Dosage: .4 MG, QD
     Route: 048
     Dates: end: 20050507
  6. CARDENSIEL [Suspect]
     Indication: CARDIAC FAILURE
     Dosage: 1.25 MG, QD
     Route: 048
  7. ESOMEPRAZOLE [Suspect]
     Route: 048
     Dates: end: 20050507
  8. CORDARONE [Suspect]
     Dosage: 200 MG, QD
     Route: 048
  9. SERETIDE ^ALLEN + HANBURYS LTD^ [Suspect]
     Dosage: UNK, UNK
     Route: 048
     Dates: end: 20050507

REACTIONS (3)
  - DIZZINESS [None]
  - LUNG INFECTION [None]
  - ORTHOSTATIC HYPOTENSION [None]
